FAERS Safety Report 8361509-1 (Version None)
Quarter: 2012Q2

REPORT INFORMATION
  Report Type: 
  Country: None (occurrence: None)
  Receive Date: 20120515
  Receipt Date: 20120502
  Transmission Date: 20120825
  Serious: Yes (Hospitalization)
  Sender: FDA-Public Use
  Company Number: FR-ELI_LILLY_AND_COMPANY-FR201205000612

PATIENT
  Sex: Male

DRUGS (10)
  1. NOZINAN [Concomitant]
     Indication: AGITATION
     Dosage: 150 MG, QID
     Route: 048
     Dates: start: 20091020
  2. RISPERDAL [Concomitant]
     Indication: SCHIZOPHRENIA
     Dosage: 4 MG, BID
     Route: 048
     Dates: start: 20091020
  3. ZYPREXA [Suspect]
     Dosage: 30 MG, QD
     Route: 048
     Dates: start: 20120213
  4. ZYPREXA [Suspect]
     Indication: SCHIZOPHRENIA
     Dosage: 30 MG, QD
     Route: 048
     Dates: start: 20091020, end: 20120203
  5. SUBUTEX [Concomitant]
  6. LEPTICUR [Concomitant]
  7. TRIMEPRAZINE TARTRATE [Concomitant]
     Indication: INSOMNIA
     Dosage: 40 DF, QD
     Route: 048
     Dates: start: 20091020
  8. SEROQUEL [Concomitant]
     Indication: SCHIZOPHRENIA, PARANOID TYPE
     Dosage: 400 MG, BID
     Route: 048
     Dates: start: 20120203, end: 20120213
  9. CLONAZEPAM [Concomitant]
     Indication: ANXIETY
     Dosage: 2 MG, TID
     Route: 048
     Dates: start: 20091020, end: 20120203
  10. ZOLPIDEM [Concomitant]
     Indication: INSOMNIA
     Dosage: 1 DF, QD
     Route: 048
     Dates: start: 20091020

REACTIONS (9)
  - OVERDOSE [None]
  - HALLUCINATION [None]
  - ANXIETY [None]
  - PSYCHIATRIC DECOMPENSATION [None]
  - INSOMNIA [None]
  - WITHDRAWAL SYNDROME [None]
  - AGITATION [None]
  - DISINHIBITION [None]
  - ABNORMAL BEHAVIOUR [None]
